FAERS Safety Report 8535269-5 (Version None)
Quarter: 2012Q3

REPORT INFORMATION
  Report Type: 
  Country: None (occurrence: None)
  Receive Date: 20120725
  Receipt Date: 20120713
  Transmission Date: 20120928
  Serious: Yes (Death, Life-Threatening, Hospitalization, Other)
  Sender: FDA-Public Use
  Company Number: DE-TEVA-330544USA

PATIENT
  Age: 61 Year
  Sex: Male
  Weight: 124 kg

DRUGS (20)
  1. GABAPENTIN [Concomitant]
     Dosage: 600 MILLIGRAM;
  2. VALORON N [Concomitant]
     Dosage: 100MG/8MG
  3. AMPHOTERICIN B [Concomitant]
  4. AMLODIPINE [Concomitant]
  5. METOPROLOL SUCCINATE [Concomitant]
     Dosage: 142.5 MILLIGRAM;
  6. PANTOPRAZOLE SODIUM [Concomitant]
     Dosage: 80 MILLIGRAM;
  7. TREANDA [Suspect]
     Indication: CHRONIC LYMPHOCYTIC LEUKAEMIA
     Dosage: UID/QD
     Route: 042
     Dates: start: 20120315
  8. HYDROCHLOROTHIAZIDE [Concomitant]
  9. FLUTICASONE PROPIONATE/SALMETEROL [Concomitant]
  10. LENALIDOMIDE [Suspect]
     Indication: CHRONIC LYMPHOCYTIC LEUKAEMIA
     Route: 048
     Dates: start: 20120315, end: 20120412
  11. RITUXIMAB [Suspect]
     Indication: CHRONIC LYMPHOCYTIC LEUKAEMIA
     Dates: start: 20120314
  12. CANDESARTAN CILEXETIL [Concomitant]
  13. INDAPAMIDE [Concomitant]
     Route: 048
  14. TORSEMIDE [Concomitant]
  15. ACETYLSALICYLIC ACID SRT [Concomitant]
  16. TIOTROPIUM BROMIDE [Concomitant]
     Dosage: 36 MICROGRAM;
  17. RIFABUTIN [Concomitant]
     Route: 048
  18. TAMSULOSIN HCL [Concomitant]
     Dosage: .4 MILLIGRAM;
  19. METFORMIN HYDROCHLORIDE [Concomitant]
     Dosage: 2 GRAM;
  20. ONDAPAMID [Concomitant]

REACTIONS (5)
  - SEPTIC SHOCK [None]
  - FEBRILE NEUTROPENIA [None]
  - RESPIRATORY SYNCYTIAL VIRUS INFECTION [None]
  - SEPSIS [None]
  - PNEUMONIA PRIMARY ATYPICAL [None]
